FAERS Safety Report 11804312 (Version 1)
Quarter: 2015Q4

REPORT INFORMATION
  Report Type: Spontaneous
  Country: US (occurrence: US)
  Receive Date: 20151204
  Receipt Date: 20151204
  Transmission Date: 20160305
  Serious: No
  Sender: FDA-Public Use
  Company Number: US-IMPAX LABORATORIES, INC-2015-IPXL-00676

PATIENT

DRUGS (1)
  1. OXYBUTYNIN CHLORIDE ER [Suspect]
     Active Substance: OXYBUTYNIN CHLORIDE
     Indication: FREQUENT BOWEL MOVEMENTS
     Dosage: 10 MG, UNK
     Route: 065

REACTIONS (2)
  - Medication residue present [Unknown]
  - Product quality control issue [Unknown]
